FAERS Safety Report 4412967-6 (Version None)
Quarter: 2004Q3

REPORT INFORMATION
  Report Type: 
  Country: None (occurrence: None)
  Receive Date: 20040802
  Receipt Date: 20031217
  Transmission Date: 20050211
  Serious: No
  Sender: FDA-Public Use
  Company Number: US-GLAXOSMITHKLINE-A0443477A

PATIENT
  Age: 5 Month
  Sex: Male
  Weight: 7.5 kg

DRUGS (2)
  1. ZANTAC [Suspect]
     Dosage: 1.2ML THREE TIMES PER DAY
     Route: 048
  2. MYLANTA [Concomitant]

REACTIONS (1)
  - OPISTHOTONUS [None]
